FAERS Safety Report 8633946 (Version 3)
Quarter: 2013Q1

REPORT INFORMATION
  Report Type: Report from Study
  Country: DE (occurrence: DE)
  Receive Date: 20120626
  Receipt Date: 20130111
  Transmission Date: 20140127
  Serious: Yes (Life-Threatening, Hospitalization, Other)
  Sender: FDA-Public Use
  Company Number: DE-AMGEN-DEUCT2012038531

PATIENT
  Age: 61 Year
  Sex: Male
  Weight: 90 kg

DRUGS (11)
  1. ETANERCEPT [Suspect]
     Indication: RHEUMATOID ARTHRITIS
     Dosage: 50 MG, WEEKLY
     Dates: start: 20070802, end: 20120620
  2. METHOTREXATE SODIUM [Suspect]
     Indication: RHEUMATOID ARTHRITIS
     Dosage: 15 MG, WEEKLY
     Route: 048
     Dates: start: 2005, end: 20120620
  3. PREDNISOLON                        /00016201/ [Concomitant]
     Indication: RHEUMATOID ARTHRITIS
     Dosage: 7.5 MG-10 MG/DAY
     Route: 048
     Dates: start: 2000
  4. PREDNISOLON                        /00016201/ [Concomitant]
     Dosage: 7.5 MG, 1X/DAY
     Route: 048
     Dates: start: 20071009
  5. PREDNISOLON                        /00016201/ [Concomitant]
     Dosage: 5 MG, 1X/DAY
     Route: 048
     Dates: start: 20080104
  6. PREDNISOLON                        /00016201/ [Concomitant]
     Dosage: 2 MG, 2X/DAY
     Dates: start: 20080401
  7. PANTOPRAZOLE [Concomitant]
     Indication: RHEUMATOID ARTHRITIS
     Dosage: 20-40 MG/DAY
     Route: 048
     Dates: start: 2006
  8. PANTOPRAZOLE [Concomitant]
     Dosage: 20 MG, 1X/DAY
     Dates: start: 20071009
  9. SULFASALAZIN [Concomitant]
     Indication: RHEUMATOID ARTHRITIS
     Dosage: UNK
  10. LEFLUNOMIDE [Concomitant]
     Indication: RHEUMATOID ARTHRITIS
     Dosage: UNK
  11. CICLOSPORIN [Concomitant]
     Indication: RHEUMATOID ARTHRITIS
     Dosage: UNK

REACTIONS (1)
  - Small intestinal perforation [Recovered/Resolved with Sequelae]
